FAERS Safety Report 18427643 (Version 1)
Quarter: 2020Q4

REPORT INFORMATION
  Report Type: Report from Study
  Country: US (occurrence: US)
  Receive Date: 20201026
  Receipt Date: 20201026
  Transmission Date: 20210114
  Serious: Yes (Death)
  Sender: FDA-Public Use
  Company Number: US-MYLANLABS-2020M1089386

PATIENT
  Sex: Female

DRUGS (3)
  1. TEMSIROLIMUS. [Suspect]
     Active Substance: TEMSIROLIMUS
     Indication: ENDOMETRIAL CANCER
     Dosage: 25 MILLIGRAM, QW
     Route: 042
  2. TAMOXIFEN [Suspect]
     Active Substance: TAMOXIFEN
     Indication: ENDOMETRIAL CANCER
     Dosage: 20 MILLIGRAM, BID FOR 3 WEEKS
     Route: 048
  3. MEGESTROL ACETATE. [Suspect]
     Active Substance: MEGESTROL ACETATE
     Indication: ENDOMETRIAL CANCER
     Dosage: 80 MILLIGRAM, BID FOR 3 WEEKS
     Route: 048

REACTIONS (1)
  - Pneumonitis [Fatal]
